FAERS Safety Report 21509768 (Version 1)
Quarter: 2022Q4

REPORT INFORMATION
  Report Type: Spontaneous
  Country: US (occurrence: None)
  Receive Date: 20221026
  Receipt Date: 20221026
  Transmission Date: 20230113
  Serious: Yes (Other)
  Sender: FDA-Public Use
  Company Number: None

PATIENT
  Age: 81 Year
  Sex: Male
  Weight: 94.30 kg

DRUGS (13)
  1. SACUBITRIL\VALSARTAN [Suspect]
     Active Substance: SACUBITRIL\VALSARTAN
     Indication: Cardiac failure
     Dosage: FREQUENCY : TWICE A DAY;?
     Route: 048
     Dates: start: 20221002, end: 20221019
  2. SACUBITRIL\VALSARTAN [Suspect]
     Active Substance: SACUBITRIL\VALSARTAN
     Indication: Blood pressure measurement
  3. isosorbide mononitrate 30mg tablets - 1/2QAM [Concomitant]
  4. finasteride 5mg tablets - 1QD [Concomitant]
  5. terazosin 10mg capsules - 1HS [Concomitant]
  6. levothyroxine 25mcg tablet - 1QD [Concomitant]
  7. atorvastatin 80mg tablets - 1QD [Concomitant]
  8. glimepiride 1mg tablets - 1QAM [Concomitant]
  9. amlodipine 5mg tablets - 1QD [Concomitant]
  10. cephalexin 500mg capsules - 1TID [Concomitant]
     Dates: start: 20221001, end: 20221008
  11. memantine 5mg tablets - 1BID [Concomitant]
  12. metformin 1000mg tablets - 1BID [Concomitant]
  13. rivastigmine 4.6/24 hours patch - apply 1 patch once daily [Concomitant]

REACTIONS (3)
  - Rash [None]
  - Ill-defined disorder [None]
  - Adverse drug reaction [None]

NARRATIVE: CASE EVENT DATE: 20221019
